FAERS Safety Report 23757548 (Version 2)
Quarter: 2024Q2

REPORT INFORMATION
  Report Type: Spontaneous
  Country: JP (occurrence: JP)
  Receive Date: 20240418
  Receipt Date: 20240607
  Transmission Date: 20240716
  Serious: Yes (Other)
  Sender: FDA-Public Use
  Company Number: JP-ONO-2024JP002909

PATIENT
  Age: 85 Year
  Sex: Male

DRUGS (21)
  1. BRAFTOVI [Suspect]
     Active Substance: ENCORAFENIB
     Indication: Colon cancer
     Dosage: 300 MG, EVERYDAY
     Route: 048
     Dates: start: 20220629, end: 20220816
  2. BRAFTOVI [Suspect]
     Active Substance: ENCORAFENIB
     Dosage: 300 MG
     Route: 048
     Dates: start: 20220909, end: 20220922
  3. BRAFTOVI [Suspect]
     Active Substance: ENCORAFENIB
     Dosage: 300 MG, EVERYDAY
     Route: 048
     Dates: start: 20220926, end: 20221215
  4. BRAFTOVI [Suspect]
     Active Substance: ENCORAFENIB
     Dosage: 300 MG
     Route: 048
     Dates: start: 20240214
  5. MEKTOVI [Suspect]
     Active Substance: BINIMETINIB
     Indication: Colon cancer
     Dosage: 45 MG
     Route: 048
     Dates: start: 20220917, end: 20220922
  6. CETUXIMAB [Concomitant]
     Active Substance: CETUXIMAB
     Indication: Colon cancer
     Dosage: 700 MG
     Route: 065
     Dates: start: 20220629, end: 20220629
  7. CETUXIMAB [Concomitant]
     Active Substance: CETUXIMAB
     Dosage: 450 MG
     Route: 065
     Dates: start: 20220706, end: 20220810
  8. CETUXIMAB [Concomitant]
     Active Substance: CETUXIMAB
     Dosage: 450 MG
     Route: 065
     Dates: start: 20220909, end: 20220916
  9. CETUXIMAB [Concomitant]
     Active Substance: CETUXIMAB
     Dosage: 430 MG
     Route: 065
     Dates: start: 20220926, end: 20220926
  10. CETUXIMAB [Concomitant]
     Active Substance: CETUXIMAB
     Dosage: 440 MG
     Route: 065
     Dates: start: 20221005, end: 20221005
  11. CETUXIMAB [Concomitant]
     Active Substance: CETUXIMAB
     Dosage: 430 MG
     Route: 065
     Dates: start: 20221012, end: 20221012
  12. CETUXIMAB [Concomitant]
     Active Substance: CETUXIMAB
     Dosage: 440 MG
     Route: 065
     Dates: start: 20221019, end: 20221109
  13. CETUXIMAB [Concomitant]
     Active Substance: CETUXIMAB
     Dosage: 450 MG
     Route: 065
     Dates: start: 20221116, end: 20230719
  14. CETUXIMAB [Concomitant]
     Active Substance: CETUXIMAB
     Dosage: 350 MG
     Route: 065
     Dates: start: 20230727, end: 20230727
  15. CETUXIMAB [Concomitant]
     Active Substance: CETUXIMAB
     Dosage: 250 MG/M2
     Route: 065
     Dates: start: 20240214
  16. VONOPRAZAN FUMARATE [Concomitant]
     Active Substance: VONOPRAZAN FUMARATE
     Dosage: 10 MG, DAILY (MORNING)
     Route: 048
  17. CARVEDILOL [Concomitant]
     Active Substance: CARVEDILOL
     Dosage: 2.5 MG, EVERYDAY
     Route: 048
  18. TRIMEBUTINE [Concomitant]
     Active Substance: TRIMEBUTINE
     Dosage: 1 DF, Q12H
     Route: 048
  19. BIO-THREE [Concomitant]
     Active Substance: HERBALS
     Dosage: 1 DF, Q12H
     Route: 048
  20. BROTIZOLAM [Concomitant]
     Active Substance: BROTIZOLAM
     Dosage: 1 DF (DOSAGE FORM), DAILY (BEFORE BEDTIME)
     Route: 048
  21. NIFEDIPINE [Concomitant]
     Active Substance: NIFEDIPINE
     Dosage: 20 MG, EVERYDAY
     Route: 048

REACTIONS (11)
  - Enterocolitis [Recovering/Resolving]
  - Gastrointestinal wall thickening [Unknown]
  - Paronychia [Unknown]
  - Diarrhoea [Recovered/Resolved]
  - Dermatitis acneiform [Recovered/Resolved]
  - Abdominal pain [Unknown]
  - Vomiting [Unknown]
  - COVID-19 [Unknown]
  - Eczema [Unknown]
  - Pruritus [Recovering/Resolving]
  - Malaise [Unknown]

NARRATIVE: CASE EVENT DATE: 20220704
